FAERS Safety Report 5270247-3 (Version None)
Quarter: 2007Q1

REPORT INFORMATION
  Report Type: 
  Country: None (occurrence: None)
  Receive Date: 20061214
  Receipt Date: 20061108
  Transmission Date: 20070707
  Serious: No
  Sender: FDA-Public Use
  Company Number: IND-AE-06-SAN-047

PATIENT
  Age: 85 Year
  Sex: Female

DRUGS (7)
  1. SANCTURA [Suspect]
     Indication: BLADDER DISORDER
     Dates: start: 20060801, end: 20061016
  2. LEXAPRO [Suspect]
     Indication: DEPRESSION
     Dosage: 10 MG QD ORAL
     Route: 048
     Dates: start: 20060601
  3. METAMUCIL (PSULLIUM) [Concomitant]
  4. LEVOXYL [Concomitant]
  5. DIOVAN [Concomitant]
  6. TYLENOL [Concomitant]
  7. MOTRIN [Concomitant]

REACTIONS (1)
  - DIARRHOEA [None]
